FAERS Safety Report 11966232 (Version 1)
Quarter: 2016Q1

REPORT INFORMATION
  Report Type: Spontaneous
  Country: None (occurrence: None)
  Receive Date: 20160126
  Receipt Date: 20160126
  Transmission Date: 20160526
  Serious: No
  Sender: FDA-Public Use
  Company Number: None

PATIENT
  Age: 52 Year
  Sex: Female
  Weight: 108.86 kg

DRUGS (2)
  1. TAMIFLU [Suspect]
     Active Substance: OSELTAMIVIR PHOSPHATE
     Indication: NASOPHARYNGITIS
     Dosage: 2 PILLS/DAY, TWICE DAILY, TAKEN BY MOUTH
     Route: 048
     Dates: start: 20160111, end: 20160111
  2. LEVOTYHYROXINE [Concomitant]

REACTIONS (2)
  - Suicidal ideation [None]
  - Negative thoughts [None]

NARRATIVE: CASE EVENT DATE: 20160108
